FAERS Safety Report 8554618-5 (Version None)
Quarter: 2012Q3

REPORT INFORMATION
  Report Type: 
  Country: None (occurrence: None)
  Receive Date: 20120731
  Receipt Date: 20120723
  Transmission Date: 20120928
  Serious: Yes (Other)
  Sender: FDA-Public Use
  Company Number: HU-JNJFOC-20120712356

PATIENT
  Sex: Female
  Weight: 75 kg

DRUGS (2)
  1. PIROXICAM [Concomitant]
     Indication: ANKYLOSING SPONDYLITIS
     Route: 042
  2. REMICADE [Suspect]
     Indication: ANKYLOSING SPONDYLITIS
     Route: 042
     Dates: start: 20120119, end: 20120720

REACTIONS (1)
  - CARDIOMYOPATHY [None]
